FAERS Safety Report 4963261-6 (Version None)
Quarter: 2006Q2

REPORT INFORMATION
  Report Type: 
  Country: None (occurrence: None)
  Receive Date: 20060404
  Receipt Date: 20060404
  Transmission Date: 20061013
  Serious: Yes (Hospitalization)
  Sender: FDA-Public Use
  Company Number: None

PATIENT
  Age: 51 Year
  Sex: Male
  Weight: 126.7 kg

DRUGS (1)
  1. LOSARTAN     25 MG     UNKNOWN [Suspect]
     Indication: BLOOD PRESSURE
     Dosage: 25 MG   DAILY   PO
     Route: 048
     Dates: start: 20050815, end: 20051215

REACTIONS (3)
  - DISEASE RECURRENCE [None]
  - PANCREATITIS [None]
  - RASH PRURITIC [None]
